FAERS Safety Report 11193933 (Version 1)
Quarter: 2015Q2

REPORT INFORMATION
  Report Type: Spontaneous
  Country: CN (occurrence: CN)
  Receive Date: 20150616
  Receipt Date: 20150616
  Transmission Date: 20150821
  Serious: Yes (Other)
  Sender: FDA-Public Use
  Company Number: CN-BAYER-2015-322475

PATIENT
  Sex: Male

DRUGS (3)
  1. GLUCOBAY [Suspect]
     Active Substance: ACARBOSE
     Dosage: 1 DF TID
     Route: 048
  2. GLUCOBAY [Suspect]
     Active Substance: ACARBOSE
     Dosage: 2 DF TID
  3. GLUCOBAY [Suspect]
     Active Substance: ACARBOSE
     Dosage: UNK

REACTIONS (3)
  - Hyperglycaemia [None]
  - Myalgia [Recovered/Resolved]
  - Mobility decreased [Recovered/Resolved]
